FAERS Safety Report 11184215 (Version 2)
Quarter: 2015Q3

REPORT INFORMATION
  Report Type: Spontaneous
  Country: US (occurrence: US)
  Receive Date: 20150612
  Receipt Date: 20150922
  Transmission Date: 20151125
  Serious: No
  Sender: FDA-Public Use
  Company Number: US-PFIZER INC-2015193877

PATIENT
  Age: 52 Year
  Sex: Male
  Weight: 66 kg

DRUGS (5)
  1. CORGARD [Suspect]
     Active Substance: NADOLOL
     Indication: SINUS TACHYCARDIA
     Dosage: 10 MG, 2X/DAY
     Dates: start: 201505
  2. PSYLLIUM [Concomitant]
     Active Substance: PLANTAGO SEED
     Dosage: UNK
  3. VITAMIN D [Concomitant]
     Active Substance: CHOLECALCIFEROL
     Dosage: UNK
  4. CORGARD [Suspect]
     Active Substance: NADOLOL
     Indication: MITRAL VALVE PROLAPSE
     Dosage: 10 MG, 2X/DAY
  5. ASPIRIN. [Concomitant]
     Active Substance: ASPIRIN
     Dosage: LOW DOSE, ALTERNATE DAY

REACTIONS (2)
  - Urticaria [Recovering/Resolving]
  - Mechanical urticaria [Recovering/Resolving]

NARRATIVE: CASE EVENT DATE: 201505
